FAERS Safety Report 6693299-2 (Version None)
Quarter: 2010Q2

REPORT INFORMATION
  Report Type: 
  Country: None (occurrence: None)
  Receive Date: 20100422
  Receipt Date: 20100415
  Transmission Date: 20101027
  Serious: Yes (Death)
  Sender: FDA-Public Use
  Company Number: US-GILEAD-2010-0028611

PATIENT
  Sex: Male
  Weight: 112.59 kg

DRUGS (28)
  1. LETAIRIS [Suspect]
     Indication: PULMONARY ARTERIAL HYPERTENSION
     Route: 048
     Dates: start: 20100227
  2. REVATIO [Concomitant]
  3. FUROSEMIDE [Concomitant]
  4. SOTALOL HCL [Concomitant]
  5. IPRATROPIUM BROMIDE [Concomitant]
  6. ALBUTEROL [Concomitant]
  7. BROVANA [Concomitant]
  8. PREDNISONE [Concomitant]
  9. ZYRTEC [Concomitant]
  10. NASONEX [Concomitant]
  11. MUCINEX DM [Concomitant]
  12. BENADRYL [Concomitant]
  13. LANTUS [Concomitant]
  14. NOVOLOG [Concomitant]
  15. NEXIUM [Concomitant]
  16. MYLANTA [Concomitant]
  17. ONDANSETRON [Concomitant]
  18. DOC-Q-LAC [Concomitant]
  19. ALLOPURINOL [Concomitant]
  20. LEVOTHYROXINE [Concomitant]
  21. FLOMAX [Concomitant]
  22. TRAMADOL HCL [Concomitant]
  23. GABAPENTIN [Concomitant]
  24. OXYCODONE HCL [Concomitant]
  25. SALINE NASAL SPRAY [Concomitant]
  26. CALCITRIOL [Concomitant]
  27. POTASSIUM CHLORIDE [Concomitant]
  28. CALCIUM +D [Concomitant]

REACTIONS (1)
  - DEATH [None]
